FAERS Safety Report 16786829 (Version 1)
Quarter: 2019Q3

REPORT INFORMATION
  Report Type: Spontaneous
  Country: TW (occurrence: TW)
  Receive Date: 20190909
  Receipt Date: 20190909
  Transmission Date: 20191005
  Serious: Yes (Other)
  Sender: FDA-Public Use
  Company Number: TW-CMP PHARMA-2019CMP00020

PATIENT
  Age: 45 Year
  Sex: Male

DRUGS (1)
  1. SPS [Suspect]
     Active Substance: SODIUM POLYSTYRENE SULFONATE
     Indication: HYPERKALAEMIA
     Route: 048

REACTIONS (2)
  - Foreign body aspiration [Recovering/Resolving]
  - Acute respiratory distress syndrome [Recovering/Resolving]
